FAERS Safety Report 24836839 (Version 1)
Quarter: 2025Q1

REPORT INFORMATION
  Report Type: Report from Study
  Country: US (occurrence: US)
  Receive Date: 20250113
  Receipt Date: 20250113
  Transmission Date: 20250409
  Serious: Yes (Death, Hospitalization)
  Sender: BAYER HEALTHCARE PHARMACEUTICALS INC.
  Company Number: US-BAYER-2024A174643

PATIENT
  Age: 80 Year
  Sex: Female
  Weight: 128.8 kg

DRUGS (14)
  1. ADEMPAS [Suspect]
     Active Substance: RIOCIGUAT
     Indication: Pulmonary arterial hypertension
     Dates: start: 20240917
  2. ADEMPAS [Suspect]
     Active Substance: RIOCIGUAT
     Indication: Pulmonary hypertension
     Dosage: 2 MG, TID
     Route: 048
  3. ADEMPAS [Suspect]
     Active Substance: RIOCIGUAT
     Indication: Pulmonary arterial hypertension
     Dosage: 2.5 MG, TID
     Route: 048
  4. HYDROCORTISONE [Concomitant]
     Active Substance: HYDROCORTISONE
  5. TYLENOL [Concomitant]
     Active Substance: ACETAMINOPHEN
  6. GABAPENTIN [Concomitant]
     Active Substance: GABAPENTIN
  7. LANTUS SOLOSTAR [Concomitant]
     Active Substance: INSULIN GLARGINE
  8. ALLOPURINOL [Concomitant]
     Active Substance: ALLOPURINOL
  9. HYDROXYUREA [Concomitant]
     Active Substance: HYDROXYUREA
  10. FLUTICASONE PROPIONATE [Concomitant]
     Active Substance: FLUTICASONE PROPIONATE
  11. WARFARIN SODIUM [Concomitant]
     Active Substance: WARFARIN SODIUM
  12. CIPROFLOXACIN HYDROCHLORIDE [Concomitant]
     Active Substance: CIPROFLOXACIN HYDROCHLORIDE
  13. TORSEMIDE [Concomitant]
     Active Substance: TORSEMIDE
  14. TAMIFLU [Concomitant]
     Active Substance: OSELTAMIVIR PHOSPHATE

REACTIONS (10)
  - Death [Fatal]
  - Myocardial infarction [None]
  - Leukaemia [None]
  - Inappropriate schedule of product administration [None]
  - Diarrhoea [None]
  - Anxiety [None]
  - Tremor [None]
  - Palpitations [None]
  - Influenza [None]
  - Pain [None]

NARRATIVE: CASE EVENT DATE: 20241206
